FAERS Safety Report 7384867-3 (Version None)
Quarter: 2011Q1

REPORT INFORMATION
  Report Type: 
  Country: None (occurrence: None)
  Receive Date: 20110330
  Receipt Date: 20110323
  Transmission Date: 20110831
  Serious: Yes (Other)
  Sender: FDA-Public Use
  Company Number: GB-PFIZER INC-2010177129

PATIENT
  Age: 67 Year
  Sex: Female

DRUGS (2)
  1. AROMASIN [Suspect]
     Indication: BREAST CANCER
     Dosage: UNK
  2. OSTEOCARE [Suspect]
     Route: 048

REACTIONS (6)
  - ARTHRALGIA [None]
  - OROPHARYNGEAL PAIN [None]
  - INSOMNIA [None]
  - ALOPECIA [None]
  - PHARYNGEAL MASS [None]
  - REFLUX GASTRITIS [None]
